FAERS Safety Report 12015525 (Version 1)
Quarter: 2016Q1

REPORT INFORMATION
  Report Type: Report from Study
  Country: US (occurrence: US)
  Receive Date: 20160205
  Receipt Date: 20160205
  Transmission Date: 20160526
  Serious: No
  Sender: FDA-Public Use
  Company Number: US-AMGEN-USASL2015052249

PATIENT
  Age: 77 Year
  Sex: Female

DRUGS (1)
  1. NEULASTA [Suspect]
     Active Substance: PEGFILGRASTIM
     Indication: LUNG NEOPLASM MALIGNANT
     Dosage: 6 MG, UNK
     Route: 065
     Dates: start: 20150306, end: 20150306

REACTIONS (7)
  - Pain [Unknown]
  - Dizziness [Unknown]
  - Musculoskeletal pain [Unknown]
  - Oropharyngeal pain [Unknown]
  - Mobility decreased [Unknown]
  - Back pain [Unknown]
  - Dyspnoea [Unknown]

NARRATIVE: CASE EVENT DATE: 20150306
